FAERS Safety Report 24611710 (Version 2)
Quarter: 2024Q4

REPORT INFORMATION
  Report Type: Report from Study
  Country: US (occurrence: US)
  Receive Date: 20241113
  Receipt Date: 20241205
  Transmission Date: 20250115
  Serious: Yes (Other)
  Sender: ALEXION PHARMACEUTICALS
  Company Number: US-AstraZeneca-CH-00735887A

PATIENT
  Age: 89 Year

DRUGS (4)
  1. ACALABRUTINIB [Suspect]
     Active Substance: ACALABRUTINIB
  2. ACALABRUTINIB [Suspect]
     Active Substance: ACALABRUTINIB
  3. ACALABRUTINIB [Suspect]
     Active Substance: ACALABRUTINIB
  4. ACALABRUTINIB [Suspect]
     Active Substance: ACALABRUTINIB

REACTIONS (1)
  - Internal haemorrhage [Unknown]
